FAERS Safety Report 6221998-5 (Version None)
Quarter: 2009Q2

REPORT INFORMATION
  Report Type: 
  Country: None (occurrence: None)
  Receive Date: 20090611
  Receipt Date: 20090320
  Transmission Date: 20091009
  Serious: Yes (Hospitalization, Other)
  Sender: FDA-Public Use
  Company Number: TR-ELI_LILLY_AND_COMPANY-TR200906002005

PATIENT
  Age: 66 Year
  Sex: Female

DRUGS (2)
  1. HUMULIN 70/30 [Suspect]
     Indication: DIABETES MELLITUS
     Dosage: 70 U, DAILY (1/D)
     Route: 058
     Dates: start: 19991201
  2. DIAFORMIN [Concomitant]
     Indication: DIABETES MELLITUS
     Dosage: 1000 MG, DAILY (1/D)
     Dates: start: 20090115

REACTIONS (3)
  - CEREBROVASCULAR ACCIDENT [None]
  - HOSPITALISATION [None]
  - HYPOAESTHESIA [None]
